FAERS Safety Report 19516899 (Version 1)
Quarter: 2021Q3

REPORT INFORMATION
  Report Type: Spontaneous
  Country: US (occurrence: US)
  Receive Date: 20210711
  Receipt Date: 20210711
  Transmission Date: 20211014
  Serious: Yes (Hospitalization)
  Sender: FDA-Public Use
  Company Number: US-GE HEALTHCARE LIFE SCIENCES-2021CSU003220

PATIENT
  Age: 38 Year
  Sex: Male

DRUGS (5)
  1. VISIPAQUE [Suspect]
     Active Substance: IODIXANOL
     Indication: PERIPHERAL ISCHAEMIA
  2. VISIPAQUE [Suspect]
     Active Substance: IODIXANOL
     Indication: ANGIOGRAM
     Dosage: UNK, SINGLE
     Route: 013
  3. VISIPAQUE [Suspect]
     Active Substance: IODIXANOL
     Indication: ANGIOPLASTY
     Dosage: UNK, SINGLE
     Route: 013
  4. VISIPAQUE [Suspect]
     Active Substance: IODIXANOL
     Indication: STENT PLACEMENT
  5. VISIPAQUE [Suspect]
     Active Substance: IODIXANOL
     Indication: PERIPHERAL ISCHAEMIA

REACTIONS (1)
  - Non-cardiogenic pulmonary oedema [Unknown]
